FAERS Safety Report 10223785 (Version 1)
Quarter: 2014Q2

REPORT INFORMATION
  Report Type: Spontaneous
  Country: GB (occurrence: None)
  Receive Date: 20140605
  Receipt Date: 20140605
  Transmission Date: 20141212
  Serious: Yes (Hospitalization)
  Sender: FDA-Public Use
  Company Number: 2374226

PATIENT
  Age: 39 Year
  Sex: Female

DRUGS (13)
  1. DACARBAZINE [Suspect]
     Indication: HODGKIN^S DISEASE
     Route: 042
     Dates: start: 20140509, end: 20140509
  2. DOXORUBICIN HYDROCHLORIDE [Suspect]
     Indication: HODGKIN^S DISEASE
     Route: 042
     Dates: start: 20140509, end: 20140509
  3. VINBLASTINE SULFATE [Suspect]
     Indication: HODGKIN^S DISEASE
     Route: 042
     Dates: start: 20140509, end: 20140509
  4. BLEOMYCIN [Suspect]
     Dosage: 10, 000 UNITS/M2
     Route: 042
     Dates: start: 20140509, end: 20140509
  5. TRIMETHOPRIM SULFAMETHOXAZOLE [Concomitant]
  6. ALLOPURINOL [Concomitant]
  7. ONDANSETRON [Concomitant]
  8. DEXAMETHASONE [Concomitant]
  9. CYCLIZINE [Concomitant]
  10. DOMPERIDONE [Concomitant]
  11. DOCUSATE SODIUM [Concomitant]
  12. TRAMADOL [Concomitant]
  13. PARACETAMOL [Concomitant]

REACTIONS (4)
  - Malaise [None]
  - Migraine [None]
  - Photopsia [None]
  - Malaise [None]
